FAERS Safety Report 12974559 (Version 2)
Quarter: 2016Q4

REPORT INFORMATION
  Report Type: Spontaneous
  Country: CH (occurrence: CH)
  Receive Date: 20161125
  Receipt Date: 20161229
  Transmission Date: 20170207
  Serious: Yes (Hospitalization)
  Sender: FDA-Public Use
  Company Number: CH-ROCHE-1857536

PATIENT
  Age: 69 Year
  Sex: Male
  Weight: 47 kg

DRUGS (12)
  1. SPIRICORT [Concomitant]
     Active Substance: PREDNISOLONE
     Route: 065
  2. SPIRICORT [Concomitant]
     Active Substance: PREDNISOLONE
     Route: 065
  3. KALCIPOS [Concomitant]
     Active Substance: CALCIUM CARBONATE
     Dosage: D3 500/800
     Route: 065
  4. PREDNISONE. [Concomitant]
     Active Substance: PREDNISONE
     Route: 048
     Dates: start: 20160315
  5. CO-AMOXI [Concomitant]
     Active Substance: AMOXICILLIN\CLAVULANATE POTASSIUM
     Route: 065
     Dates: start: 20161010, end: 20161016
  6. FORSTEO [Concomitant]
     Active Substance: TERIPARATIDE
     Dosage: SOLUTION FOR INJECTION 20 MG/D
     Route: 058
  7. VITARUBIN [Concomitant]
     Active Substance: CYANOCOBALAMIN
     Dosage: 1000 MCG, SOLUTION FOR INJECTION
     Route: 065
  8. SPIRIVA [Concomitant]
     Active Substance: TIOTROPIUM BROMIDE MONOHYDRATE
     Dosage: INHALATION CAPSULES,18 MCG
     Route: 065
  9. ACTEMRA [Suspect]
     Active Substance: TOCILIZUMAB
     Indication: RHEUMATOID ARTHRITIS
     Route: 042
     Dates: start: 20160926, end: 20161021
  10. XARELTO [Concomitant]
     Active Substance: RIVAROXABAN
     Route: 065
  11. NEBIVOLOL. [Concomitant]
     Active Substance: NEBIVOLOL
     Route: 065
  12. ATORVASTATIN [Concomitant]
     Active Substance: ATORVASTATIN
     Route: 065

REACTIONS (3)
  - Acute interstitial pneumonitis [Recovered/Resolved]
  - Interstitial lung disease [Recovered/Resolved]
  - Dyspnoea [Recovering/Resolving]

NARRATIVE: CASE EVENT DATE: 20161006
